FAERS Safety Report 7916686-0 (Version None)
Quarter: 2011Q4

REPORT INFORMATION
  Report Type: 
  Country: None (occurrence: None)
  Receive Date: 20111116
  Receipt Date: 20111105
  Transmission Date: 20120403
  Serious: Yes (Hospitalization, Other)
  Sender: FDA-Public Use
  Company Number: US-BAYER-2011-027802

PATIENT
  Age: 21 Year
  Sex: Female
  Weight: 120.18 kg

DRUGS (3)
  1. LEXAPRO [Concomitant]
     Dosage: DAILY DOSE 20 MG
     Route: 048
  2. TRILEPTAL [Concomitant]
     Dosage: 300 MG, BID
     Route: 048
  3. YAZ [Suspect]
     Dosage: UNK
     Dates: start: 20050101

REACTIONS (8)
  - ANXIETY [None]
  - INJURY [None]
  - GENERAL PHYSICAL HEALTH DETERIORATION [None]
  - CHOLECYSTITIS ACUTE [None]
  - CHOLECYSTECTOMY [None]
  - PAIN [None]
  - ANHEDONIA [None]
  - EMOTIONAL DISTRESS [None]
